FAERS Safety Report 6739985-7 (Version None)
Quarter: 2010Q2

REPORT INFORMATION
  Report Type: 
  Country: None (occurrence: None)
  Receive Date: 20100525
  Receipt Date: 20100512
  Transmission Date: 20101027
  Serious: Yes (Hospitalization, Disabling)
  Sender: FDA-Public Use
  Company Number: JP-ELI_LILLY_AND_COMPANY-JP201004003727

PATIENT
  Age: 80 Year
  Sex: Female
  Weight: 32 kg

DRUGS (11)
  1. PEMETREXED [Suspect]
     Indication: LUNG ADENOCARCINOMA STAGE IV
     Dosage: 500 MG/M2, UNK
     Route: 042
     Dates: start: 20090918, end: 20100129
  2. PANVITAN [Concomitant]
     Dosage: 1 G, DAILY (1/D)
     Route: 048
     Dates: start: 20090804, end: 20100214
  3. MASBLON H [Concomitant]
     Dosage: 1 MG, OTHER
     Route: 030
     Dates: start: 20090804, end: 20100129
  4. KYTRIL [Concomitant]
     Route: 042
     Dates: start: 20090918, end: 20100129
  5. DECADRON /NET/ [Concomitant]
     Route: 042
     Dates: start: 20090918, end: 20100129
  6. ASPIRIN [Concomitant]
     Indication: ATRIAL FIBRILLATION
     Dates: end: 20100214
  7. MAINTATE [Concomitant]
     Indication: ATRIAL FIBRILLATION
     Route: 048
  8. MYSLEE [Concomitant]
     Indication: INSOMNIA
     Route: 048
  9. PROMAC [Concomitant]
     Indication: ABDOMINAL PAIN UPPER
     Route: 048
  10. FERROMIA [Concomitant]
     Indication: IRON DEFICIENCY ANAEMIA
     Route: 048
  11. ZOMETA [Concomitant]
     Indication: METASTASES TO BONE
     Route: 042
     Dates: start: 20091006, end: 20100129

REACTIONS (2)
  - STATUS EPILEPTICUS [None]
  - SUBDURAL HAEMATOMA [None]
